FAERS Safety Report 11490162 (Version 4)
Quarter: 2016Q1

REPORT INFORMATION
  Report Type: Spontaneous
  Country: GB (occurrence: GB)
  Receive Date: 20150910
  Receipt Date: 20160104
  Transmission Date: 20160525
  Serious: Yes (Hospitalization, Other)
  Sender: FDA-Public Use
  Company Number: GB-ROCHE-1612487

PATIENT
  Sex: Female

DRUGS (1)
  1. HERCEPTIN [Suspect]
     Active Substance: TRASTUZUMAB
     Indication: PRODUCT USED FOR UNKNOWN INDICATION
     Dosage: CYCLE14/17
     Route: 058

REACTIONS (13)
  - Epistaxis [Unknown]
  - Wound infection [Unknown]
  - Osteomyelitis [Unknown]
  - Rhinorrhoea [Unknown]
  - Malaise [Unknown]
  - Tachycardia [Unknown]
  - Blood pressure increased [Unknown]
  - Wound [Not Recovered/Not Resolved]
  - Fatigue [Not Recovered/Not Resolved]
  - Vomiting [Recovered/Resolved]
  - Insomnia [Not Recovered/Not Resolved]
  - Lacrimation increased [Unknown]
  - Lip dry [Unknown]
